FAERS Safety Report 23816500 (Version 1)
Quarter: 2024Q2

REPORT INFORMATION
  Report Type: Spontaneous
  Country: CA (occurrence: CA)
  Receive Date: 20240503
  Receipt Date: 20240503
  Transmission Date: 20240716
  Serious: Yes (Other)
  Sender: FDA-Public Use
  Company Number: CA-TEVA-VS-3193342

PATIENT
  Age: 73 Year
  Sex: Male
  Weight: 95 kg

DRUGS (4)
  1. METHYLPREDNISOLONE SODIUM SUCCINATE [Suspect]
     Active Substance: METHYLPREDNISOLONE SODIUM SUCCINATE
     Indication: Product used for unknown indication
     Route: 065
  2. HUMAN IMMUNOGLOBULIN G [Suspect]
     Active Substance: HUMAN IMMUNOGLOBULIN G
     Indication: Product used for unknown indication
     Route: 065
  3. RUXIENCE [Suspect]
     Active Substance: RITUXIMAB-PVVR
     Indication: Myasthenia gravis
     Dosage: DOSAGE FORM: SOLUTION INTRAVENOUS, CONCENTRATE. SINGLE USE VIAL
     Route: 042
  4. RUXIENCE [Suspect]
     Active Substance: RITUXIMAB-PVVR
     Indication: Myasthenia gravis
     Dosage: CONCENTRATE. SINGLE USE VIAL
     Route: 065

REACTIONS (3)
  - Chronic inflammatory demyelinating polyradiculoneuropathy [Unknown]
  - Drug ineffective [Unknown]
  - Myasthenia gravis [Unknown]
